FAERS Safety Report 9971763 (Version 1)
Quarter: 2014Q1

REPORT INFORMATION
  Report Type: Report from Study
  Country: US (occurrence: US)
  Receive Date: 20140306
  Receipt Date: 20140306
  Transmission Date: 20141002
  Serious: No
  Sender: FDA-Public Use
  Company Number: US-ABBVIE-13P-163-1151111-00

PATIENT
  Age: 46 Year
  Sex: Female

DRUGS (17)
  1. HUMIRA [Suspect]
     Indication: RHEUMATOID ARTHRITIS
     Dates: start: 20130909
  2. GABAPENTIN [Concomitant]
     Indication: NEURALGIA
     Dosage: 2 TABS DAILY
  3. TRAZODONE [Concomitant]
     Indication: INSOMNIA
     Dosage: 2 TABS AT NIGHT
  4. SAVELLA [Concomitant]
     Indication: FIBROMYALGIA
  5. SYNTHROID [Concomitant]
     Indication: HYPOTHYROIDISM
     Dosage: 2 TABS DAILY
  6. CYMBALTA [Concomitant]
     Indication: PAIN
     Dosage: 60MG DAILY
  7. CYMBALTA [Concomitant]
     Indication: DEPRESSION
  8. FLEXERIL [Concomitant]
     Indication: MUSCLE SPASMS
     Dosage: 10MG DAILY
  9. TOPAMAX [Concomitant]
     Indication: MIGRAINE PROPHYLAXIS
  10. METHOTREXATE [Concomitant]
     Indication: RHEUMATOID ARTHRITIS
     Dosage: 4 TABS WEEKLY
  11. FOLIC ACID [Concomitant]
     Indication: ALOPECIA
     Dosage: 2 TABS DAILY
  12. IRON [Concomitant]
     Indication: PAIN
     Dosage: 5MG/325MG
  13. MULTIVITAMIN [Concomitant]
     Indication: PRODUCT USED FOR UNKNOWN INDICATION
  14. VITAMIN B12 [Concomitant]
     Indication: PRODUCT USED FOR UNKNOWN INDICATION
  15. CALCIUM [Concomitant]
     Indication: PRODUCT USED FOR UNKNOWN INDICATION
  16. ZINC [Concomitant]
     Indication: PRODUCT USED FOR UNKNOWN INDICATION
  17. MAGNESIUM [Concomitant]
     Indication: NUTRITIONAL SUPPLEMENTATION
     Dosage: DAILY

REACTIONS (2)
  - Device malfunction [Recovered/Resolved]
  - Injection site pain [Recovered/Resolved]
